FAERS Safety Report 4676691-7 (Version None)
Quarter: 2005Q2

REPORT INFORMATION
  Report Type: 
  Country: None (occurrence: None)
  Receive Date: 20050527
  Receipt Date: 20050118
  Transmission Date: 20051028
  Serious: Yes (Death, Other)
  Sender: FDA-Public Use
  Company Number: PHNU2005DE00589

PATIENT
  Age: 26 Year
  Sex: Female
  Weight: 100 kg

DRUGS (3)
  1. CIPRAMIL [Suspect]
     Dosage: UNK, UNK
     Route: 048
     Dates: start: 20030101
  2. CIPRAMIL [Suspect]
     Dosage: UNK, UNK
     Route: 048
     Dates: start: 20030101
  3. LEPONEX / CLOZARIL (CLOZAPINE) [Suspect]
     Indication: SCHIZOAFFECTIVE DISORDER
     Dosage: UNK, UNK
     Route: 048
     Dates: start: 20030701

REACTIONS (5)
  - DRUG INTERACTION [None]
  - DRUG LEVEL INCREASED [None]
  - MYOCARDIAL FIBROSIS [None]
  - SUDDEN DEATH [None]
  - TACHYCARDIA [None]
